FAERS Safety Report 7933796-2 (Version None)
Quarter: 2011Q4

REPORT INFORMATION
  Report Type: 
  Country: None (occurrence: None)
  Receive Date: 20111122
  Receipt Date: 20111116
  Transmission Date: 20120403
  Serious: Yes (Death, Life-Threatening)
  Sender: FDA-Public Use
  Company Number: JP-ELI_LILLY_AND_COMPANY-JP201105002316

PATIENT
  Sex: Male
  Weight: 55 kg

DRUGS (2)
  1. GEMZAR [Suspect]
     Indication: BILE DUCT CANCER
     Dosage: 1600 MG, UNK
     Route: 042
     Dates: start: 20110201, end: 20110328
  2. GEMZAR [Suspect]
     Dosage: 1300 MG, UNK
     Route: 042
     Dates: start: 20110329, end: 20110425

REACTIONS (4)
  - PNEUMONIA [None]
  - PNEUMOMEDIASTINUM [None]
  - SUBCUTANEOUS EMPHYSEMA [None]
  - PULMONARY FIBROSIS [None]
